FAERS Safety Report 24198993 (Version 1)
Quarter: 2024Q3

REPORT INFORMATION
  Report Type: Spontaneous
  Country: US (occurrence: US)
  Receive Date: 20240812
  Receipt Date: 20240812
  Transmission Date: 20241017
  Serious: No
  Sender: TEVA
  Company Number: US-TEVA-VS-3228946

PATIENT
  Age: 67 Year
  Sex: Female

DRUGS (3)
  1. COPAXONE [Suspect]
     Active Substance: GLATIRAMER ACETATE
     Indication: Multiple sclerosis
     Route: 065
  2. KEPPRA [Concomitant]
     Active Substance: LEVETIRACETAM
  3. CLONAZEPAM [Concomitant]
     Active Substance: CLONAZEPAM

REACTIONS (1)
  - Drug ineffective [Unknown]
